FAERS Safety Report 6972175-1 (Version None)
Quarter: 2010Q3

REPORT INFORMATION
  Report Type: 
  Country: None (occurrence: None)
  Receive Date: 20100909
  Receipt Date: 20100826
  Transmission Date: 20110219
  Serious: No
  Sender: FDA-Public Use
  Company Number: US-BIOGENIDEC-2010BI029555

PATIENT
  Age: 37 Year
  Sex: Female

DRUGS (1)
  1. AVONEX [Suspect]
     Indication: MULTIPLE SCLEROSIS
     Route: 030
     Dates: start: 20100802

REACTIONS (6)
  - ARTHRALGIA [None]
  - FORMICATION [None]
  - HYPOTONIA [None]
  - INFLUENZA LIKE ILLNESS [None]
  - RESTLESSNESS [None]
  - VIBRATORY SENSE INCREASED [None]
